FAERS Safety Report 20632379 (Version 1)
Quarter: 2022Q1

REPORT INFORMATION
  Report Type: Spontaneous
  Country: SG (occurrence: SG)
  Receive Date: 20220324
  Receipt Date: 20220324
  Transmission Date: 20220424
  Serious: Yes (Other)
  Sender: FDA-Public Use
  Company Number: SG-PFIZER INC-202200463628

PATIENT
  Age: 48 Year
  Sex: Female

DRUGS (2)
  1. PALBOCICLIB [Suspect]
     Active Substance: PALBOCICLIB
     Dosage: UNK UNK, DAILY
     Dates: start: 2018
  2. LETROZOLE [Suspect]
     Active Substance: LETROZOLE
     Dosage: UNK
     Dates: start: 2018

REACTIONS (2)
  - Superior vena cava occlusion [Unknown]
  - Neoplasm progression [Unknown]
